FAERS Safety Report 22259499 (Version 2)
Quarter: 2023Q2

REPORT INFORMATION
  Report Type: Report from Study
  Country: ES (occurrence: ES)
  Receive Date: 20230427
  Receipt Date: 20230503
  Transmission Date: 20230721
  Serious: Yes (Hospitalization)
  Sender: FDA-Public Use
  Company Number: ES-PFIZER INC-PV202300070785

PATIENT
  Age: 71 Year
  Sex: Female
  Weight: 59.1 kg

DRUGS (6)
  1. FLUOROURACIL [Suspect]
     Active Substance: FLUOROURACIL
     Indication: Colorectal cancer metastatic
     Dosage: 672 MG, Q2W, BOLUS
     Route: 042
     Dates: start: 20230330
  2. FLUOROURACIL [Suspect]
     Active Substance: FLUOROURACIL
     Dosage: 4032 MG, Q2W, CONTINUOUS INFUSION
     Route: 042
     Dates: start: 20230330
  3. ENCORAFENIB [Suspect]
     Active Substance: ENCORAFENIB
     Indication: Colorectal cancer metastatic
     Dosage: 300 MG, DAILY
     Route: 048
     Dates: start: 20230323
  4. CETUXIMAB [Suspect]
     Active Substance: CETUXIMAB
     Indication: Colorectal cancer metastatic
     Dosage: 840 MG, Q2W
     Route: 042
     Dates: start: 20230330
  5. OXALIPLATIN [Suspect]
     Active Substance: OXALIPLATIN
     Indication: Colorectal cancer metastatic
     Dosage: 142.8 MG, Q2W
     Route: 042
     Dates: start: 20230330
  6. LEUCOVORIN [Suspect]
     Active Substance: LEUCOVORIN
     Indication: Colorectal cancer metastatic
     Dosage: 672 MG, Q2W
     Route: 042
     Dates: start: 20230330

REACTIONS (1)
  - Pulmonary embolism [Recovered/Resolved with Sequelae]

NARRATIVE: CASE EVENT DATE: 20230418
